FAERS Safety Report 8866717 (Version 1)
Quarter: 2012Q4

REPORT INFORMATION
  Report Type: 
  Country: US (occurrence: US)
  Receive Date: 20121025
  Receipt Date: 20121025
  Transmission Date: 20130627
  Serious: No
  Sender: FDA-Public Use
  Company Number: US-AMGEN-USASP2012013084

PATIENT
  Age: 33 Year
  Sex: Female

DRUGS (2)
  1. ENBREL [Suspect]
     Indication: RHEUMATOID ARTHRITIS
     Dosage: 50 mg, qwk
     Dates: start: 20090501, end: 20120124
  2. METHOTREXATE [Concomitant]

REACTIONS (3)
  - Allergy to metals [Unknown]
  - Blister [Recovered/Resolved]
  - Sinusitis [Not Recovered/Not Resolved]
